FAERS Safety Report 4660255-5 (Version None)
Quarter: 2005Q2

REPORT INFORMATION
  Report Type: 
  Country: None (occurrence: None)
  Receive Date: 20050505
  Receipt Date: 20050106
  Transmission Date: 20051028
  Serious: No
  Sender: FDA-Public Use
  Company Number: 2005USFACT00225

PATIENT
  Age: 74 Year
  Sex: Female
  Weight: 98 kg

DRUGS (6)
  1. FACTIVE [Suspect]
     Indication: RESPIRATORY TRACT INFECTION BACTERIAL
     Dosage: 320.00 MG, ORAL
     Route: 048
     Dates: start: 20041229, end: 20041230
  2. FOSAMAX [Concomitant]
  3. ACCUPRIL [Concomitant]
  4. LESCOL XL [Concomitant]
  5. COUMADIN [Concomitant]
  6. SOTALOL HCL [Concomitant]

REACTIONS (1)
  - RASH PRURITIC [None]
